FAERS Safety Report 21380023 (Version 4)
Quarter: 2022Q4

REPORT INFORMATION
  Report Type: Spontaneous
  Country: BR (occurrence: BR)
  Receive Date: 20220927
  Receipt Date: 20221103
  Transmission Date: 20230113
  Serious: Yes (Disabling, Other)
  Sender: FDA-Public Use
  Company Number: BR-ASTELLAS-2022US032802

PATIENT
  Age: 77 Year
  Sex: Female

DRUGS (4)
  1. MYRBETRIQ [Suspect]
     Active Substance: MIRABEGRON
     Indication: Hypertonic bladder
     Dosage: 50 MG, ONCE DAILY (PRODUCT TAKEN AT 9AM, WITH A GLASS OF WATER)
     Route: 048
  2. LOSARTAN [Concomitant]
     Active Substance: LOSARTAN
     Indication: Blood pressure abnormal
     Route: 065
  3. HYDROCHLOROTHIAZIDE [Concomitant]
     Active Substance: HYDROCHLOROTHIAZIDE
     Indication: Blood pressure abnormal
     Route: 065
  4. Fixare [Concomitant]
     Indication: Osteoporosis
     Dosage: 1 DF, ONCE DAILY (1 TABLET /DAY)
     Route: 065

REACTIONS (6)
  - Rheumatoid arthritis [Unknown]
  - Mobility decreased [Not Recovered/Not Resolved]
  - Infected varicose vein [Not Recovered/Not Resolved]
  - Poor peripheral circulation [Not Recovered/Not Resolved]
  - Erythema [Unknown]
  - Drug ineffective [Unknown]

NARRATIVE: CASE EVENT DATE: 20220101
